FAERS Safety Report 4386816-9 (Version None)
Quarter: 2004Q2

REPORT INFORMATION
  Report Type: 
  Country: None (occurrence: None)
  Receive Date: 20040628
  Receipt Date: 20040628
  Transmission Date: 20050107
  Serious: Yes (Other)
  Sender: FDA-Public Use
  Company Number: None

PATIENT
  Sex: Female
  Weight: 58.9676 kg

DRUGS (3)
  1. CONCERTA [Suspect]
     Indication: DYSTHYMIC DISORDER
     Dosage: 18 MGS TWICE DAIL ORAL
     Route: 048
     Dates: start: 20040518, end: 20040607
  2. CONCERTA [Suspect]
     Indication: FATIGUE
     Dosage: 18 MGS TWICE DAIL ORAL
     Route: 048
     Dates: start: 20040518, end: 20040607
  3. ZOLOFT [Concomitant]

REACTIONS (3)
  - ABNORMAL BEHAVIOUR [None]
  - CONFUSIONAL STATE [None]
  - MEMORY IMPAIRMENT [None]
